FAERS Safety Report 16498049 (Version 1)
Quarter: 2019Q2

REPORT INFORMATION
  Report Type: Spontaneous
  Country: US (occurrence: US)
  Receive Date: 20190628
  Receipt Date: 20190628
  Transmission Date: 20190711
  Serious: Yes (Other)
  Sender: FDA-Public Use
  Company Number: US-MYLANLABS-2019M1059963

PATIENT
  Age: 9 Year
  Sex: Female

DRUGS (3)
  1. FLUCONAZOLE. [Suspect]
     Active Substance: FLUCONAZOLE
     Indication: PRODUCT USED FOR UNKNOWN INDICATION
     Route: 065
  2. FLUTICASONE. [Interacting]
     Active Substance: FLUTICASONE
     Indication: PRODUCT USED FOR UNKNOWN INDICATION
     Route: 050
  3. POSACONAZOLE [Interacting]
     Active Substance: POSACONAZOLE
     Indication: PRODUCT USED FOR UNKNOWN INDICATION
     Route: 065

REACTIONS (6)
  - Adrenal insufficiency [Recovered/Resolved]
  - Femur fracture [Unknown]
  - Drug interaction [Recovered/Resolved]
  - Growth failure [Recovered/Resolved]
  - Cushingoid [Recovered/Resolved]
  - Osteoporosis [Recovered/Resolved]
